FAERS Safety Report 5261950-X (Version None)
Quarter: 2007Q1

REPORT INFORMATION
  Report Type: 
  Country: None (occurrence: None)
  Receive Date: 20070308
  Receipt Date: 20070227
  Transmission Date: 20070707
  Serious: Yes (Death)
  Sender: FDA-Public Use
  Company Number: 237365

PATIENT
  Age: 37 Year
  Sex: Female
  Weight: 67.1 kg

DRUGS (2)
  1. AVASTIN [Suspect]
     Indication: GLIOBLASTOMA MULTIFORME
     Dosage: 10 MG/KG, Q2W, INTRAVENOUS
     Route: 042
     Dates: start: 20061206
  2. IRINOTECAN HCL [Concomitant]

REACTIONS (4)
  - BRAIN DEATH [None]
  - CARDIAC ARREST [None]
  - EPISTAXIS [None]
  - HYPOXIA [None]
